FAERS Safety Report 4965483-7 (Version None)
Quarter: 2006Q2

REPORT INFORMATION
  Report Type: 
  Country: None (occurrence: None)
  Receive Date: 20060406
  Receipt Date: 20060202
  Transmission Date: 20061013
  Serious: Yes (Hospitalization, Disabling)
  Sender: FDA-Public Use
  Company Number: US-MERCK-0602USA01676

PATIENT
  Age: 50 Year
  Sex: Male
  Weight: 102 kg

DRUGS (4)
  1. VIOXX [Suspect]
     Indication: SHOULDER PAIN
     Route: 048
     Dates: start: 20000420, end: 20040716
  2. VIOXX [Suspect]
     Route: 048
     Dates: start: 20000420, end: 20040716
  3. VIOXX [Suspect]
     Indication: ARTHRITIS
     Route: 048
     Dates: start: 20000420, end: 20040716
  4. VIOXX [Suspect]
     Route: 048
     Dates: start: 20000420, end: 20040716

REACTIONS (4)
  - CARDIAC DISORDER [None]
  - GALLBLADDER DISORDER [None]
  - LACERATION [None]
  - MYOCARDIAL INFARCTION [None]
